FAERS Safety Report 5005101-5 (Version None)
Quarter: 2006Q2

REPORT INFORMATION
  Report Type: 
  Country: None (occurrence: None)
  Receive Date: 20060512
  Receipt Date: 20060501
  Transmission Date: 20061013
  Serious: Yes (Death)
  Sender: FDA-Public Use
  Company Number: 2006050341

PATIENT
  Age: 78 Year
  Sex: Male
  Weight: 54 kg

DRUGS (7)
  1. VFEND [Suspect]
     Indication: ASPERGILLOSIS
     Dosage: 640 MG (320 MG, 2 IN 1 D) INTRAVENOUS ; 400 MG (200 MG, 2 IN 1 D) INTRAVENOUS
     Route: 042
     Dates: start: 20060118, end: 20060118
  2. VFEND [Suspect]
     Indication: ASPERGILLOSIS
     Dosage: 640 MG (320 MG, 2 IN 1 D) INTRAVENOUS ; 400 MG (200 MG, 2 IN 1 D) INTRAVENOUS
     Route: 042
     Dates: start: 20060119, end: 20060201
  3. MEROPEN (MEROPENEM) [Concomitant]
  4. FIRSTCIN (CEFOZOPRAN HYDROCHLORIDE) [Concomitant]
  5. ERYTHROCIN [Concomitant]
  6. BIAPENEM [Concomitant]
  7. VANCOMYCIN [Concomitant]

REACTIONS (3)
  - BRONCHITIS PNEUMOCOCCAL [None]
  - INTERSTITIAL LUNG DISEASE [None]
  - PNEUMONIA [None]
